FAERS Safety Report 4896342-6 (Version None)
Quarter: 2006Q1

REPORT INFORMATION
  Report Type: 
  Country: None (occurrence: None)
  Receive Date: 20060126
  Receipt Date: 20060112
  Transmission Date: 20060701
  Serious: Yes (Hospitalization)
  Sender: FDA-Public Use
  Company Number: 2006BH000498

PATIENT
  Sex: Male

DRUGS (3)
  1. EXTRANEAL [Suspect]
     Indication: PERITONEAL DIALYSIS
     Dosage: AS NEEDED; IP
     Route: 033
  2. PHYSIONEAL 35 (PHYSIONEAL 35 GLUCOSE AND ELECTROLYTE SOLUTION) [Suspect]
     Indication: PERITONEAL DIALYSIS
     Dosage: AS NEEDED, IP
     Route: 033
  3. PHYSIONEAL 35 (PHYSIONEAL 35 GLUCOSE AND ELECTROLYTE SOLUTION) [Suspect]

REACTIONS (2)
  - PERITONITIS [None]
  - SUBILEUS [None]
